FAERS Safety Report 13368767 (Version 1)
Quarter: 2017Q1

REPORT INFORMATION
  Report Type: Spontaneous
  Country: US (occurrence: US)
  Receive Date: 20170324
  Receipt Date: 20170324
  Transmission Date: 20170429
  Serious: No
  Sender: FDA-Public Use
  Company Number: US-ASTRAZENECA-2017SE29537

PATIENT
  Age: 910 Month
  Sex: Male
  Weight: 93.9 kg

DRUGS (4)
  1. BRILINTA [Suspect]
     Active Substance: TICAGRELOR
     Indication: MYOCARDIAL INFARCTION
     Route: 048
     Dates: start: 201510
  2. ALLEGRA OTC [Concomitant]
     Indication: ANTIALLERGIC THERAPY
     Route: 048
     Dates: start: 20170201
  3. ASPIRIN. [Concomitant]
     Active Substance: ASPIRIN
     Indication: ADJUVANT THERAPY
     Route: 048
     Dates: start: 201510
  4. AUGMENTIN [Concomitant]
     Active Substance: AMOXICILLIN\CLAVULANATE POTASSIUM
     Indication: SINUSITIS
     Dosage: TWO TIMES A DAY
     Route: 048
     Dates: start: 20170314

REACTIONS (7)
  - Sinusitis [Not Recovered/Not Resolved]
  - Ear disorder [Unknown]
  - Tympanic membrane disorder [Not Recovered/Not Resolved]
  - Off label use [Unknown]
  - Hypoacusis [Not Recovered/Not Resolved]
  - Eustachian tube disorder [Unknown]
  - Epistaxis [Recovered/Resolved]

NARRATIVE: CASE EVENT DATE: 201609
